FAERS Safety Report 19888259 (Version 1)
Quarter: 2021Q3

REPORT INFORMATION
  Report Type: Spontaneous
  Country: ES (occurrence: ES)
  Receive Date: 20210927
  Receipt Date: 20210927
  Transmission Date: 20211014
  Serious: No
  Sender: FDA-Public Use
  Company Number: ES-GW PHARMA-202109ESGW04573

PATIENT

DRUGS (7)
  1. EPIDYOLEX [Suspect]
     Active Substance: CANNABIDIOL
     Dosage: 2.5 MILLIGRAM, QWK
     Route: 048
     Dates: start: 202003, end: 2021
  2. EPIDYOLEX [Suspect]
     Active Substance: CANNABIDIOL
     Dosage: 12 MG/KG
     Route: 048
     Dates: start: 202104, end: 2021
  3. EPIDYOLEX [Suspect]
     Active Substance: CANNABIDIOL
     Dosage: 13 MG/KG
     Dates: start: 202107
  4. TOPIRAMATE. [Suspect]
     Active Substance: TOPIRAMATE
     Indication: PRODUCT USED FOR UNKNOWN INDICATION
     Dosage: 50 MILLIGRAM, BID
     Route: 065
     Dates: start: 202003
  5. EPIDYOLEX [Suspect]
     Active Substance: CANNABIDIOL
     Indication: LENNOX-GASTAUT SYNDROME
     Dosage: UNK
     Route: 048
     Dates: start: 202003, end: 202003
  6. CARBAMAZEPINE. [Suspect]
     Active Substance: CARBAMAZEPINE
     Indication: PRODUCT USED FOR UNKNOWN INDICATION
     Dosage: 5 MILLIGRAM, QD
     Route: 065
     Dates: start: 202003
  7. VALPROIC ACID. [Suspect]
     Active Substance: VALPROIC ACID
     Indication: PRODUCT USED FOR UNKNOWN INDICATION
     Dosage: 600 MILLIGRAM, BID
     Route: 065
     Dates: start: 202003

REACTIONS (3)
  - Seizure [Unknown]
  - Therapeutic response unexpected [Unknown]
  - Irritability [Unknown]

NARRATIVE: CASE EVENT DATE: 2020
